FAERS Safety Report 5626552-1 (Version None)
Quarter: 2008Q1

REPORT INFORMATION
  Report Type: 
  Country: None (occurrence: None)
  Receive Date: 20080214
  Receipt Date: 20080131
  Transmission Date: 20080703
  Serious: Yes (Other)
  Sender: FDA-Public Use
  Company Number: BR-RANBAXY-2008R5-12877

PATIENT

DRUGS (2)
  1. ISOTRETINOINA [Suspect]
     Indication: ACNE
     Dosage: 20 MG, TID
     Route: 048
     Dates: start: 20080110, end: 20080119
  2. GENTEAL [Concomitant]

REACTIONS (5)
  - EPISTAXIS [None]
  - EYE HAEMORRHAGE [None]
  - HEADACHE [None]
  - MYALGIA [None]
  - SKIN EXFOLIATION [None]
